FAERS Safety Report 7755600-8 (Version None)
Quarter: 2011Q3

REPORT INFORMATION
  Report Type: 
  Country: None (occurrence: None)
  Receive Date: 20110916
  Receipt Date: 20110905
  Transmission Date: 20111222
  Serious: No
  Sender: FDA-Public Use
  Company Number: JP-JNJFOC-20110806295

PATIENT
  Sex: Female

DRUGS (16)
  1. GOLIMUMAB [Suspect]
     Indication: RHEUMATOID ARTHRITIS
     Route: 058
     Dates: start: 20081020, end: 20090609
  2. GOLIMUMAB [Suspect]
     Route: 058
     Dates: start: 20091019, end: 20110622
  3. MOBIC [Concomitant]
     Route: 048
  4. ALFAROL [Concomitant]
     Route: 048
  5. METHOTREXATE [Concomitant]
     Route: 048
     Dates: start: 20100215, end: 20100606
  6. METHOTREXATE [Concomitant]
     Route: 048
     Dates: start: 20100607
  7. LOXONIN [Concomitant]
     Route: 048
  8. GASLON N [Concomitant]
     Route: 048
  9. ADOAIR [Concomitant]
     Route: 055
     Dates: start: 20090126
  10. RINDERON-VG [Concomitant]
     Route: 062
     Dates: start: 20081215
  11. PREDNISOLONE [Concomitant]
     Route: 048
     Dates: start: 20090723
  12. SODIUM AUROTHIOMALATE [Concomitant]
  13. SULFASALAZINE [Concomitant]
  14. METHOTREXATE [Concomitant]
     Route: 048
     Dates: end: 20100214
  15. BUCILLAMINE [Concomitant]
  16. RABEPRAZOLE SODIUM [Concomitant]
     Route: 048

REACTIONS (1)
  - HERPES ZOSTER [None]
